FAERS Safety Report 14665376 (Version 5)
Quarter: 2018Q2

REPORT INFORMATION
  Report Type: Spontaneous
  Country: CA (occurrence: CA)
  Receive Date: 20180321
  Receipt Date: 20180531
  Transmission Date: 20180711
  Serious: Yes (Other)
  Sender: FDA-Public Use
  Company Number: CA-CELLTRION INC.-2018CA018274

PATIENT

DRUGS (6)
  1. CALCIUM [Concomitant]
     Active Substance: CALCIUM
     Dosage: UNK
  2. INFLECTRA [Suspect]
     Active Substance: INFLIXIMAB-DYYB
     Dosage: 10 MG/KG, CYCLIC (EVERY 0,2, 6 AND EVERY 8 WEEKS)
     Route: 042
     Dates: start: 20180328
  3. INFLECTRA [Suspect]
     Active Substance: INFLIXIMAB-DYYB
     Dosage: 10 MG/KG, CYCLIC (EVERY 0,2, 6 AND EVERY 8 WEEKS)
     Route: 042
     Dates: start: 20180228
  4. CORTISONE [Concomitant]
     Active Substance: CORTISONE\HYDROCORTISONE
     Dosage: UNK
  5. INFLECTRA [Suspect]
     Active Substance: INFLIXIMAB-DYYB
     Indication: COLITIS ULCERATIVE
     Dosage: 10 MG/KG, CYCLIC (Q2, 6 AND EVERY 8 WEEKS)
     Route: 042
     Dates: start: 20180214
  6. INFLECTRA [Suspect]
     Active Substance: INFLIXIMAB-DYYB
     Dosage: 10 MG/KG, CYCLIC (EVERY 0,2, 6 AND EVERY 8 WEEKS)
     Route: 042
     Dates: start: 20180523

REACTIONS (12)
  - Weight increased [Unknown]
  - Musculoskeletal disorder [Unknown]
  - Arthropathy [Unknown]
  - Inflammation [Unknown]
  - Dry skin [Recovering/Resolving]
  - Asthenia [Unknown]
  - Product use issue [Unknown]
  - Blood pressure fluctuation [Unknown]
  - Drug effect incomplete [Unknown]
  - C-reactive protein increased [Recovering/Resolving]
  - Fatigue [Unknown]
  - Haematochezia [Recovered/Resolved]

NARRATIVE: CASE EVENT DATE: 20180228
